FAERS Safety Report 5214222-3 (Version None)
Quarter: 2007Q1

REPORT INFORMATION
  Report Type: 
  Country: None (occurrence: None)
  Receive Date: 20070122
  Receipt Date: 20070109
  Transmission Date: 20070707
  Serious: Yes (Life-Threatening, Hospitalization, Disabling)
  Sender: FDA-Public Use
  Company Number: 2006GB01811

PATIENT
  Age: 63 Year
  Sex: Male
  Weight: 80 kg

DRUGS (6)
  1. LOSEC [Suspect]
     Indication: GASTROOESOPHAGEAL REFLUX DISEASE
     Route: 048
     Dates: start: 20020101, end: 20060501
  2. LOSEC [Suspect]
     Route: 048
     Dates: start: 20060601
  3. OMEPRAZOLE [Suspect]
     Route: 042
  4. PANTOPRAZOLE SODIUM [Suspect]
  5. LANSOPRAZOLE [Suspect]
  6. RABEPRAZOLE SODIUM [Suspect]

REACTIONS (3)
  - HYPOCALCAEMIA [None]
  - HYPOMAGNESAEMIA [None]
  - TETANY [None]
